FAERS Safety Report 25506024 (Version 1)
Quarter: 2025Q3

REPORT INFORMATION
  Report Type: Spontaneous
  Country: US (occurrence: US)
  Receive Date: 20250702
  Receipt Date: 20250702
  Transmission Date: 20251020
  Serious: Yes (Other)
  Sender: RADIUS PHARM
  Company Number: US-RADIUS HEALTH, INC.-2023US003772

PATIENT
  Sex: Female

DRUGS (1)
  1. TYMLOS [Suspect]
     Active Substance: ABALOPARATIDE
     Indication: Senile osteoporosis
     Route: 058
     Dates: start: 202305

REACTIONS (7)
  - Fatigue [Unknown]
  - Bone pain [Unknown]
  - Insomnia [Unknown]
  - Back pain [Unknown]
  - Injection site pain [Unknown]
  - Palpitations [Unknown]
  - Myalgia [Unknown]
